FAERS Safety Report 21688114 (Version 3)
Quarter: 2023Q1

REPORT INFORMATION
  Report Type: Report from Study
  Country: LT (occurrence: LT)
  Receive Date: 20221206
  Receipt Date: 20230103
  Transmission Date: 20230417
  Serious: Yes (Hospitalization)
  Sender: FDA-Public Use
  Company Number: LT-BAYER-2022A142530

PATIENT
  Age: 56 Year
  Sex: Male
  Weight: 73 kg

DRUGS (9)
  1. RADIUM RA-223 DICHLORIDE [Suspect]
     Active Substance: RADIUM RA-223 DICHLORIDE
     Indication: Hormone-refractory prostate cancer
     Dosage: 55 KBQ/KG
     Route: 041
     Dates: start: 20221003, end: 20221003
  2. RADIUM RA-223 DICHLORIDE [Suspect]
     Active Substance: RADIUM RA-223 DICHLORIDE
     Indication: Metastases to bone
     Dosage: 55 KBQ/KG
     Route: 041
     Dates: start: 20221103, end: 20221103
  3. RADIUM RA-223 DICHLORIDE [Suspect]
     Active Substance: RADIUM RA-223 DICHLORIDE
     Indication: Hormone-refractory prostate cancer
     Dosage: 55 KBQ/KG
     Route: 041
     Dates: start: 20221205, end: 20221205
  4. BISUO A [Concomitant]
     Dosage: 5 MG, BID
     Dates: start: 20221008, end: 20221017
  5. OMEPRAZOLE [Concomitant]
     Active Substance: OMEPRAZOLE
     Dosage: 20 MG, BID
     Dates: start: 20221008, end: 20221017
  6. CIPROFLOXACIN [Concomitant]
     Active Substance: CIPROFLOXACIN
     Dosage: 400 MG, BID
     Dates: start: 20221008, end: 20221010
  7. SULTAMICILLIN [Concomitant]
     Active Substance: SULTAMICILLIN
     Dosage: 3 G, QID
     Dates: start: 20221010, end: 20221017
  8. SODIUM CHLORIDE [Concomitant]
     Active Substance: SODIUM CHLORIDE
     Dosage: 500 ML, QD
     Dates: start: 20221008, end: 20221017
  9. DEXTROSE [Concomitant]
     Active Substance: DEXTROSE
     Dosage: 500 ML, QD
     Dates: start: 20221008, end: 20221014

REACTIONS (1)
  - Tubulointerstitial nephritis [Recovered/Resolved]

NARRATIVE: CASE EVENT DATE: 20221008
